FAERS Safety Report 16528930 (Version 1)
Quarter: 2019Q3

REPORT INFORMATION
  Report Type: Report from Study
  Country: CR (occurrence: CR)
  Receive Date: 20190703
  Receipt Date: 20190703
  Transmission Date: 20191004
  Serious: Yes (Other)
  Sender: FDA-Public Use
  Company Number: PHHY2015CR157898

PATIENT
  Sex: Male

DRUGS (9)
  1. MAGNESIUM [Concomitant]
     Active Substance: MAGNESIUM
     Indication: PRODUCT USED FOR UNKNOWN INDICATION
     Route: 048
  2. ENALAPRIL [Concomitant]
     Active Substance: ENALAPRIL
     Indication: HYPERTENSION
     Route: 065
  3. LORATADINE. [Concomitant]
     Active Substance: LORATADINE
     Indication: PRODUCT USED FOR UNKNOWN INDICATION
     Dosage: 10 MG, QD
     Route: 048
  4. IBUPROFEN. [Concomitant]
     Active Substance: IBUPROFEN
     Indication: PAIN
     Dosage: 400 MG, UNK
     Route: 048
  5. GEMFIBROZIL. [Concomitant]
     Active Substance: GEMFIBROZIL
     Indication: PRODUCT USED FOR UNKNOWN INDICATION
     Dosage: 600 MG, QD
     Route: 048
  6. TRAMADOL. [Concomitant]
     Active Substance: TRAMADOL
     Indication: PRODUCT USED FOR UNKNOWN INDICATION
     Dosage: 8 DRP, Q12H
     Route: 048
  7. TASIGNA [Suspect]
     Active Substance: NILOTINIB
     Indication: LEUKAEMIA
     Dosage: 2 DF, BID
     Route: 065
     Dates: end: 20180219
  8. ACETYLSALICYLIC ACID [Concomitant]
     Active Substance: ASPIRIN
     Indication: PRODUCT USED FOR UNKNOWN INDICATION
     Dosage: 100 MG, QD
     Route: 048
  9. ACETAMINOPHEN AND CODEINE [Suspect]
     Active Substance: ACETAMINOPHEN\CODEINE PHOSPHATE
     Indication: BONE PAIN
     Dosage: UNK
     Route: 065

REACTIONS (27)
  - Urinary tract disorder [Unknown]
  - Bladder pain [Unknown]
  - Malaise [Unknown]
  - Swelling [Not Recovered/Not Resolved]
  - Gait disturbance [Unknown]
  - Abdominal pain [Unknown]
  - Head discomfort [Unknown]
  - Feeling hot [Unknown]
  - Gastritis [Unknown]
  - Dysuria [Unknown]
  - Fatigue [Unknown]
  - Gastric ulcer [Unknown]
  - Orchitis noninfective [Unknown]
  - Foot deformity [Unknown]
  - Dysstasia [Unknown]
  - Pain in extremity [Unknown]
  - Testicular swelling [Not Recovered/Not Resolved]
  - Genital pain [Unknown]
  - Bone pain [Unknown]
  - Concomitant disease aggravated [Unknown]
  - Cyst [Unknown]
  - Abdominal pain upper [Unknown]
  - Dyspepsia [Not Recovered/Not Resolved]
  - Inflammation [Unknown]
  - Hepatic pain [Unknown]
  - Discomfort [Unknown]
  - Feeling abnormal [Unknown]
